FAERS Safety Report 17316380 (Version 2)
Quarter: 2020Q1

REPORT INFORMATION
  Report Type: Report from Study
  Country: GB (occurrence: GB)
  Receive Date: 20200124
  Receipt Date: 20200130
  Transmission Date: 20200409
  Serious: Yes (Hospitalization)
  Sender: FDA-Public Use
  Company Number: GB-JNJFOC-20200126736

PATIENT
  Sex: Female

DRUGS (9)
  1. OMEPRAZOLE. [Concomitant]
     Active Substance: OMEPRAZOLE
  2. PARACETAMOL [Concomitant]
     Active Substance: ACETAMINOPHEN
  3. STELARA [Suspect]
     Active Substance: USTEKINUMAB
     Indication: CROHN^S DISEASE
     Route: 058
     Dates: start: 2019
  4. FORCEVAL                           /07405301/ [Concomitant]
     Active Substance: FOLIC ACID\IRON\MINERALS\VITAMINS
  5. ATORVASTATIN [Concomitant]
     Active Substance: ATORVASTATIN
  6. COLESEVELAM [Concomitant]
     Active Substance: COLESEVELAM
  7. EDOXABAN [Concomitant]
     Active Substance: EDOXABAN TOSYLATE
  8. CALCICHEW [Concomitant]
     Active Substance: CALCIUM CARBONATE
  9. PREDNISOLONE. [Concomitant]
     Active Substance: PREDNISOLONE

REACTIONS (2)
  - Crohn^s disease [Unknown]
  - Skin cancer [Unknown]

NARRATIVE: CASE EVENT DATE: 2019
